FAERS Safety Report 8576290-0 (Version None)
Quarter: 2012Q3

REPORT INFORMATION
  Report Type: 
  Country: None (occurrence: None)
  Receive Date: 20120807
  Receipt Date: 20120806
  Transmission Date: 20120928
  Serious: Yes (Other)
  Sender: FDA-Public Use
  Company Number: FR-ROCHE-1020891

PATIENT
  Sex: Male
  Weight: 71 kg

DRUGS (26)
  1. RO 5024048 (HCV POLYMERASE INHIBITOR) [Suspect]
     Indication: HEPATITIS C
     Dosage: RECENT DOSE PRIOR TO AE ONSET 08 DEC 2011, LAST DOSE 1000MG
     Route: 048
  2. PEGASYS [Suspect]
     Indication: HEPATITIS C
     Dosage: RECENT DOSE OF PEGASYS PRIOR TO AE 06 DEC 2011, DOSE 180UG
     Route: 058
  3. NEORECORMON [Concomitant]
     Indication: ANAEMIA
     Dates: start: 20111108, end: 20120215
  4. SOLIAN [Concomitant]
     Indication: IRRITABILITY
     Dates: start: 20120509
  5. RED BLOOD CELLS [Concomitant]
     Indication: ANAEMIA
     Dates: start: 20111206, end: 20111206
  6. COPEGUS [Suspect]
     Indication: HEPATITIS C
     Dosage: RECENT DOSE PRIOR TO AE ONSET 08 DEC 2011, LAST DOSE 400 MG
     Route: 048
  7. ARTHRODONT [Concomitant]
     Indication: TONGUE DISORDER
     Dates: start: 20111018, end: 20111206
  8. PYOSTACINE [Concomitant]
     Indication: OEDEMA PERIPHERAL
     Dates: start: 20111115, end: 20111125
  9. RO 5190591 (HCV PROTEASE INHIBITOR) [Suspect]
     Indication: HEPATITIS C
     Dosage: RECENT DOSE OF DANOPREVIR PRIOR TO AE ONSET 08 DEC 2011, LAST DOSE 100MG
     Route: 048
     Dates: start: 20110906
  10. RITONAVIR [Suspect]
     Indication: HEPATITIS C
     Dosage: RECENT DOSE PRIOR TO AE ONSET 08 DEC 2011, LAST DOSE 100MG
     Route: 048
     Dates: start: 20110906
  11. PRIMPERAN ELIXIR [Concomitant]
     Indication: NAUSEA
     Dates: start: 20111004, end: 20120106
  12. DEXERYL (FRANCE) [Concomitant]
     Indication: PRURITUS
     Dates: start: 20111117, end: 20111220
  13. PRIMPERAN ELIXIR [Concomitant]
     Dates: start: 20120113, end: 20120221
  14. TRIVASTAL [Concomitant]
     Indication: PARAESTHESIA
     Dates: start: 20010101
  15. XYZAL [Concomitant]
     Indication: PRURITUS
     Dates: start: 20111004, end: 20111108
  16. SODIUM BICARBONATE [Concomitant]
     Indication: TONGUE DISORDER
     Dates: start: 20111018, end: 20111206
  17. KETOCONAZOLE [Concomitant]
     Indication: PRURITUS
     Dates: start: 20111117, end: 20111220
  18. NERISONE [Concomitant]
     Indication: PRURITUS
     Dates: start: 20111117, end: 20111215
  19. SMECTA (FRANCE) [Concomitant]
     Indication: DIARRHOEA
     Dates: start: 20111215, end: 20111228
  20. DEXERYL (FRANCE) [Concomitant]
     Indication: ERYTHEMA
     Dates: start: 20111004, end: 20111220
  21. ACETAMINOPHEN [Concomitant]
     Indication: HEADACHE
     Dates: start: 20110906, end: 20111017
  22. SOLIAN [Concomitant]
     Indication: AFFECTIVE DISORDER
     Dates: start: 20111228, end: 20120110
  23. OXAZEPAM [Concomitant]
     Indication: IRRITABILITY
     Dates: start: 20100506
  24. NOCTAMIDE [Concomitant]
     Indication: INSOMNIA
     Dates: start: 20111004, end: 20120328
  25. IBUPROFEN [Concomitant]
     Indication: FACIAL PAIN
     Dates: start: 20111018, end: 20111206
  26. PAROXETINE [Concomitant]
     Indication: AFFECTIVE DISORDER
     Dates: start: 20120110, end: 20120328

REACTIONS (1)
  - PORPHYRIA NON-ACUTE [None]
